FAERS Safety Report 7227957-8 (Version None)
Quarter: 2011Q1

REPORT INFORMATION
  Report Type: 
  Country: None (occurrence: None)
  Receive Date: 20110111
  Receipt Date: 20110111
  Transmission Date: 20110831
  Serious: Yes (Death)
  Sender: FDA-Public Use
  Company Number: None

PATIENT
  Sex: Male

DRUGS (3)
  1. WELLBUTRIN XL [Suspect]
     Indication: DEPRESSION
     Dosage: 1 TABLET DAILY BY MOUTH
     Route: 048
     Dates: start: 20100619, end: 20100723
  2. TRAZODONE HCL [Suspect]
     Indication: DEPRESSION
     Dosage: 1 TABLET @ BEDTIME BY MOUTH
     Route: 048
     Dates: start: 20100720, end: 20100722
  3. ZOLPIDEM [Suspect]
     Indication: INSOMNIA
     Dosage: 1 TABLET AT BEDTIME BY MOUTH
     Route: 048
     Dates: start: 20100717, end: 20100722

REACTIONS (6)
  - INSOMNIA [None]
  - PARANOIA [None]
  - IMPULSE-CONTROL DISORDER [None]
  - GUN SHOT WOUND [None]
  - ANXIETY [None]
  - COMPLETED SUICIDE [None]
